FAERS Safety Report 13741092 (Version 1)
Quarter: 2017Q3

REPORT INFORMATION
  Report Type: Spontaneous
  Country: US (occurrence: US)
  Receive Date: 20170711
  Receipt Date: 20170711
  Transmission Date: 20171127
  Serious: No
  Sender: FDA-Public Use
  Company Number: US-TEVA-786457USA

PATIENT
  Sex: Male

DRUGS (1)
  1. PROAIR HFA [Suspect]
     Active Substance: ALBUTEROL SULFATE

REACTIONS (5)
  - Product physical issue [Unknown]
  - Intentional product misuse [Unknown]
  - Condition aggravated [Unknown]
  - Drug ineffective [Unknown]
  - Wrong technique in product usage process [Unknown]
